FAERS Safety Report 25868522 (Version 1)
Quarter: 2025Q4

REPORT INFORMATION
  Report Type: Spontaneous
  Country: EU (occurrence: EU)
  Receive Date: 20251001
  Receipt Date: 20251001
  Transmission Date: 20260118
  Serious: Yes (Other)
  Sender: CATALYST PHARMA
  Company Number: EU-CATALYSTPHARMACEUTICALPARTNERS-SI-CATA-25-01475

PATIENT
  Age: 10 Year
  Sex: Male

DRUGS (1)
  1. AGAMREE [Suspect]
     Active Substance: VAMOROLONE
     Indication: Duchenne muscular dystrophy
     Dosage: 160 MG (4 ML) PER OS DAILY
     Route: 048

REACTIONS (8)
  - Papilloedema [Unknown]
  - Pain in extremity [Not Recovered/Not Resolved]
  - Arthralgia [Not Recovered/Not Resolved]
  - Joint stiffness [Not Recovered/Not Resolved]
  - Rash [Not Recovered/Not Resolved]
  - Ear swelling [Not Recovered/Not Resolved]
  - Gait disturbance [Not Recovered/Not Resolved]
  - Hypokinesia [Not Recovered/Not Resolved]
